FAERS Safety Report 8271703 (Version 6)
Quarter: 2012Q4

REPORT INFORMATION
  Report Type: 
  Country: US (occurrence: US)
  Receive Date: 20111201
  Receipt Date: 20121206
  Transmission Date: 20130627
  Serious: Yes (Hospitalization, Other)
  Sender: FDA-Public Use
  Company Number: US-MERCK-1111USA03909

PATIENT

DRUGS (6)
  1. FOSAMAX [Suspect]
     Indication: OSTEOPOROSIS
     Dosage: 70 mg, UNK
     Route: 048
     Dates: start: 20021201, end: 20080605
  2. FOSAMAX [Suspect]
     Indication: OSTEOPENIA
  3. ALENDRONATE SODIUM [Suspect]
     Indication: OSTEOPOROSIS
     Dosage: 70 mg, UNK
     Route: 048
     Dates: start: 20080605, end: 2011
  4. CENTRUM (MINERALS (UNSPECIFIED) (+) VITAMINS (UNSPECIFIED)) [Concomitant]
     Indication: PRODUCT USED FOR UNKNOWN INDICATION
     Dosage: UNK, qd
     Route: 048
     Dates: start: 2006
  5. PREDNISONE [Concomitant]
     Indication: AUTOIMMUNE HEPATITIS
     Dosage: 7.5 Microgram, qd
     Dates: start: 1980
  6. PROCARDIA [Concomitant]
     Indication: RAYNAUD^S PHENOMENON

REACTIONS (69)
  - Femur fracture [Recovering/Resolving]
  - Femur fracture [Recovered/Resolved]
  - Intramedullary rod insertion [Unknown]
  - Intramedullary rod insertion [Unknown]
  - Vaginal prolapse repair [Unknown]
  - Appendicectomy [Unknown]
  - Reye^s syndrome [Unknown]
  - Cholecystectomy [Unknown]
  - Acute myocardial infarction [Unknown]
  - Coronary artery disease [Unknown]
  - Ovarian cystectomy [Unknown]
  - Pneumonia [Recovered/Resolved]
  - Angioplasty [Unknown]
  - Stent placement [Unknown]
  - Adrenal gland cancer [Unknown]
  - Abnormal loss of weight [Unknown]
  - Incontinence [Unknown]
  - Fatigue [Unknown]
  - Chills [Unknown]
  - Asthenia [Unknown]
  - Dizziness [Unknown]
  - Asthenia [Unknown]
  - Malaise [Unknown]
  - Diarrhoea [Unknown]
  - Abdominal pain [Unknown]
  - Asthenia [Unknown]
  - Adrenal adenoma [Unknown]
  - Gastric varices [Unknown]
  - Hypertension [Unknown]
  - Pleural effusion [Unknown]
  - Chest X-ray abnormal [Unknown]
  - Atelectasis [Unknown]
  - Postoperative wound complication [Unknown]
  - Ovarian cyst [Unknown]
  - Onychomycosis [Unknown]
  - Cataract [Unknown]
  - Incisional hernia [Unknown]
  - Peripheral sensory neuropathy [Unknown]
  - Tooth extraction [Unknown]
  - Denture wearer [Unknown]
  - Depression [Recovering/Resolving]
  - Hypokalaemia [Unknown]
  - Vaginal prolapse [Unknown]
  - Liver disorder [Unknown]
  - Stress [Recovering/Resolving]
  - Hypoxia [Unknown]
  - Dyspnoea exertional [Unknown]
  - Decreased appetite [Unknown]
  - Adjustment disorder [Recovering/Resolving]
  - Atrial fibrillation [Unknown]
  - Lower respiratory tract infection [Unknown]
  - Gravitational oedema [Unknown]
  - Nocturia [Unknown]
  - Fatigue [Unknown]
  - Ecchymosis [Unknown]
  - Dyslipidaemia [Unknown]
  - Blood albumin abnormal [Unknown]
  - Lung infiltration [Unknown]
  - Atelectasis [Unknown]
  - Pulmonary fibrosis [Unknown]
  - Hepatic cirrhosis [Unknown]
  - Biliary dilatation [Unknown]
  - Abdominal hernia [Unknown]
  - Haemorrhagic anaemia [Unknown]
  - Inguinal hernia [Unknown]
  - Renal cyst [Unknown]
  - Nausea [Unknown]
  - Pyrexia [Unknown]
  - Fall [Unknown]
